FAERS Safety Report 15650641 (Version 1)
Quarter: 2018Q4

REPORT INFORMATION
  Report Type: Spontaneous
  Country: DE (occurrence: DE)
  Receive Date: 20181123
  Receipt Date: 20181123
  Transmission Date: 20190205
  Serious: Yes (Hospitalization)
  Sender: FDA-Public Use
  Company Number: DE-ACCORD-093446

PATIENT
  Age: 58 Year
  Sex: Male
  Weight: 78 kg

DRUGS (13)
  1. DRONABINOL. [Interacting]
     Active Substance: DRONABINOL
     Indication: PRODUCT USED FOR UNKNOWN INDICATION
  2. TRAMAL [Concomitant]
     Active Substance: TRAMADOL
  3. COTRIM [Concomitant]
     Active Substance: SULFAMETHOXAZOLE\TRIMETHOPRIM
  4. CYCLOPHOSPHAMIDE/CYCLOPHOSPHAMIDE MONOHYDRATE [Interacting]
     Active Substance: CYCLOPHOSPHAMIDE
     Indication: HODGKIN^S DISEASE
     Dates: start: 20171213
  5. PROCARBAZINE [Interacting]
     Active Substance: PROCARBAZINE
     Indication: HODGKIN^S DISEASE
     Dates: start: 20171213
  6. ACICLOVIR [Concomitant]
     Active Substance: ACYCLOVIR
  7. DOXORUBICIN [Interacting]
     Active Substance: DOXORUBICIN
     Indication: HODGKIN^S DISEASE
     Dates: start: 20171213
  8. PREDNISOLONE. [Interacting]
     Active Substance: PREDNISOLONE
     Indication: HODGKIN^S DISEASE
     Dates: start: 20171213
  9. VINCRISTINE [Interacting]
     Active Substance: VINCRISTINE
     Indication: HODGKIN^S DISEASE
     Dates: start: 20171213
  10. ETOPOSIDE. [Suspect]
     Active Substance: ETOPOSIDE
     Indication: HODGKIN^S DISEASE
     Dates: start: 20171213
  11. BLEOMYCIN [Interacting]
     Active Substance: BLEOMYCIN SULFATE
     Indication: HODGKIN^S DISEASE
     Dates: start: 20171213
  12. MCP [Concomitant]
     Active Substance: METOCLOPRAMIDE HYDROCHLORIDE
  13. NOVALGIN (METAMIZOLE SODIUM) [Concomitant]
     Active Substance: METAMIZOLE SODIUM

REACTIONS (3)
  - Drug interaction [Unknown]
  - Paraparesis [Not Recovered/Not Resolved]
  - Off label use [Unknown]

NARRATIVE: CASE EVENT DATE: 201802
